FAERS Safety Report 9712124 (Version 2)
Quarter: 2014Q2

REPORT INFORMATION
  Report Type: Spontaneous
  Country: US (occurrence: US)
  Receive Date: 20131126
  Receipt Date: 20140523
  Transmission Date: 20141212
  Serious: Yes (Death, Hospitalization, Other)
  Sender: FDA-Public Use
  Company Number: US-B.I. PHARMACEUTICALS,INC./RIDGEFIELD-2013-BI-38710BP

PATIENT
  Age: 69 Year
  Sex: Male
  Weight: 130.5 kg

DRUGS (1)
  1. PRADAXA [Suspect]
     Indication: ANTICOAGULANT THERAPY
     Route: 065
     Dates: start: 20110714, end: 20120508

REACTIONS (6)
  - Gastrointestinal haemorrhage [Fatal]
  - Abdominal pain [Recovered/Resolved]
  - Haematochezia [Unknown]
  - Unresponsive to stimuli [Unknown]
  - Respiratory failure [Unknown]
  - Renal haemorrhage [Unknown]
